FAERS Safety Report 21756042 (Version 2)
Quarter: 2023Q1

REPORT INFORMATION
  Report Type: Spontaneous
  Country: FR (occurrence: FR)
  Receive Date: 20221220
  Receipt Date: 20230110
  Transmission Date: 20230417
  Serious: Yes (Hospitalization)
  Sender: FDA-Public Use
  Company Number: None

PATIENT
  Age: 63 Year
  Sex: Male

DRUGS (3)
  1. CARBOPLATIN [Suspect]
     Active Substance: CARBOPLATIN
     Indication: Neuroendocrine carcinoma
     Dosage: 850 MILLIGRAM
     Route: 042
     Dates: start: 20220712, end: 20220824
  2. ETOPOSIDE [Suspect]
     Active Substance: ETOPOSIDE
     Indication: Neuroendocrine carcinoma
     Dosage: 188 MILLIGRAM
     Route: 042
     Dates: start: 20220712, end: 20220824
  3. IMFINZI [Suspect]
     Active Substance: DURVALUMAB
     Indication: Neuroendocrine carcinoma
     Dosage: 4 WEEK, STRENGTH 50 MILLIGRAM PER MILLILITRE
     Route: 042
     Dates: start: 20220712, end: 20220824

REACTIONS (1)
  - Colitis [Recovered/Resolved]

NARRATIVE: CASE EVENT DATE: 20220923
